FAERS Safety Report 17652317 (Version 1)
Quarter: 2020Q2

REPORT INFORMATION
  Report Type: Spontaneous
  Country: FR (occurrence: FR)
  Receive Date: 20200409
  Receipt Date: 20200409
  Transmission Date: 20200713
  Serious: Yes (Other)
  Sender: FDA-Public Use
  Company Number: FR-MYLANLABS-2020M1036147

PATIENT
  Age: 15 Year
  Sex: Female
  Weight: 50 kg

DRUGS (2)
  1. VANCOMYCIN MYLAN [Interacting]
     Active Substance: VANCOMYCIN
     Indication: STAPHYLOCOCCAL BACTERAEMIA
     Dosage: 3040 MILLIGRAM, QD (4 DOSES)
     Route: 041
     Dates: start: 20200204, end: 20200205
  2. PIPERACILLIN AND TAZOBACTAM [Suspect]
     Active Substance: PIPERACILLIN SODIUM\TAZOBACTAM SODIUM
     Indication: SUPERINFECTION BACTERIAL
     Dosage: 300 MILLIGRAM/KILOGRAM, QD
     Route: 041
     Dates: start: 20200131

REACTIONS (3)
  - Overdose [Recovered/Resolved]
  - Potentiating drug interaction [Recovered/Resolved]
  - Acute kidney injury [Recovered/Resolved]

NARRATIVE: CASE EVENT DATE: 20200204
